FAERS Safety Report 5212931-3 (Version None)
Quarter: 2007Q1

REPORT INFORMATION
  Report Type: 
  Country: None (occurrence: None)
  Receive Date: 20070117
  Receipt Date: 20070110
  Transmission Date: 20070707
  Serious: Yes (Hospitalization)
  Sender: FDA-Public Use
  Company Number: GXBR2007US00480

PATIENT
  Age: 17 Year
  Sex: Male
  Weight: 73.9 kg

DRUGS (3)
  1. AZITHROMYCIN [Suspect]
     Indication: BRONCHITIS
     Dosage: 500 MG, ONCE/SINGLE, ORAL
     Route: 048
     Dates: start: 20061204, end: 20061204
  2. TYLENOL [Concomitant]
  3. CLARINEX/USA/(DESLORATADINE) [Concomitant]

REACTIONS (4)
  - ABDOMINAL PAIN [None]
  - MALAISE [None]
  - RASH [None]
  - VASCULITIS [None]
